FAERS Safety Report 12377494 (Version 2)
Quarter: 2019Q1

REPORT INFORMATION
  Report Type: Spontaneous
  Country: US (occurrence: US)
  Receive Date: 20160517
  Receipt Date: 20190201
  Transmission Date: 20190417
  Serious: No
  Sender: FDA-Public Use
  Company Number: US-JNJFOC-20160410281

PATIENT
  Age: 78 Year
  Sex: Female
  Weight: 42.64 kg

DRUGS (3)
  1. MOTRIN IB [Suspect]
     Active Substance: IBUPROFEN
     Indication: ARTHRALGIA
     Dosage: MORNING
     Route: 048
  2. BACTRIM [Concomitant]
     Active Substance: SULFAMETHOXAZOLE\TRIMETHOPRIM
     Indication: INFECTION
     Dosage: DAILY
     Route: 065
  3. MOTRIN IB [Suspect]
     Active Substance: IBUPROFEN
     Route: 048

REACTIONS (2)
  - Drug ineffective [Unknown]
  - Incorrect dose administered [Unknown]
